FAERS Safety Report 21576915 (Version 1)
Quarter: 2022Q4

REPORT INFORMATION
  Report Type: Spontaneous
  Country: US (occurrence: None)
  Receive Date: 20221109
  Receipt Date: 20221109
  Transmission Date: 20230112
  Serious: Yes (Hospitalization)
  Sender: FDA-Public Use
  Company Number: None

PATIENT
  Age: 79 Year
  Sex: Male

DRUGS (1)
  1. CAPECITABINE [Suspect]
     Active Substance: CAPECITABINE
     Dosage: FREQUENCY : TWICE A DAY;?
     Route: 048
     Dates: start: 202105

REACTIONS (5)
  - Cystitis [None]
  - Bladder dysfunction [None]
  - Therapy interrupted [None]
  - Weight decreased [None]
  - Off label use [None]

NARRATIVE: CASE EVENT DATE: 20220914
